FAERS Safety Report 12443583 (Version 7)
Quarter: 2016Q3

REPORT INFORMATION
  Report Type: Report from Study
  Country: BE (occurrence: BE)
  Receive Date: 20160607
  Receipt Date: 20160817
  Transmission Date: 20161109
  Serious: Yes (Hospitalization)
  Sender: FDA-Public Use
  Company Number: BE-ABBVIE-16P-013-1645026-00

PATIENT
  Age: 55 Year
  Sex: Male

DRUGS (10)
  1. DUODOPA [Suspect]
     Active Substance: CARBIDOPA\LEVODOPA
     Dosage: AM DOSE=9ML; CD=6ML/H DURING 16HRS AND ED=2ML
     Route: 050
     Dates: start: 20160609, end: 20160613
  2. DUODOPA [Suspect]
     Active Substance: CARBIDOPA\LEVODOPA
     Dosage: AM= 0; CD= 4.1 ML/H DURING 16 HRS; ED= 2 ML
     Route: 050
     Dates: start: 20160404, end: 20160607
  3. DUODOPA [Suspect]
     Active Substance: CARBIDOPA\LEVODOPA
     Dosage: AM:6.4ML; CD: 4.4ML/H FOR 16HRS; ED: 2ML
     Route: 050
     Dates: start: 20160607, end: 20160609
  4. DUODOPA [Suspect]
     Active Substance: CARBIDOPA\LEVODOPA
     Dosage: AM DOSE=0ML; CD=4.4ML/H DURING 16HRS AND ED=2ML
     Route: 050
     Dates: start: 20160613, end: 201608
  5. DUODOPA [Suspect]
     Active Substance: CARBIDOPA\LEVODOPA
     Dosage: DOSES CONTINUOUSLY MONITORED AND ADAPTED
     Route: 050
     Dates: start: 20120816, end: 20160404
  6. DUODOPA [Suspect]
     Active Substance: CARBIDOPA\LEVODOPA
     Indication: PRODUCT USED FOR UNKNOWN INDICATION
     Dosage: AM = 5 ML; CD= 4 ML/H DURING 16 HRS; ED= 2 ML
     Route: 050
     Dates: start: 20120813, end: 20120816
  7. DUODOPA [Suspect]
     Active Substance: CARBIDOPA\LEVODOPA
     Route: 050
     Dates: start: 201608
  8. STALEVO [Concomitant]
     Active Substance: CARBIDOPA\ENTACAPONE\LEVODOPA
     Indication: PARKINSON^S DISEASE
     Dosage: FORM STRENGTH: 200MG/50MG/200MG; 4/DAY AS RESCUE MEDICATION
     Route: 048
  9. PROLOPA HBS [Concomitant]
     Active Substance: BENSERAZIDE\LEVODOPA
     Indication: PARKINSON^S DISEASE
     Dosage: FORM STRENGTH: 100MG/25MG
     Route: 048
  10. PROLOPA HBS [Concomitant]
     Active Substance: BENSERAZIDE\LEVODOPA
     Route: 048

REACTIONS (8)
  - Respiratory distress [Recovering/Resolving]
  - Device leakage [Unknown]
  - Freezing phenomenon [Unknown]
  - Incorrect route of drug administration [Unknown]
  - Muscle rigidity [Unknown]
  - Dysphagia [Unknown]
  - Device dislocation [Unknown]
  - Medical induction of coma [Recovered/Resolved]

NARRATIVE: CASE EVENT DATE: 20160601
